FAERS Safety Report 19076460 (Version 1)
Quarter: 2021Q1

REPORT INFORMATION
  Report Type: Spontaneous
  Country: PT (occurrence: PT)
  Receive Date: 20210331
  Receipt Date: 20210331
  Transmission Date: 20210420
  Serious: Yes (Other)
  Sender: FDA-Public Use
  Company Number: PT-BAUSCH-BL-2021-010792

PATIENT
  Age: 50 Year
  Sex: Female

DRUGS (1)
  1. KYNTHEUM (SOLUTION FOR INJECTION) (BRODALUMAB) [Suspect]
     Active Substance: BRODALUMAB
     Indication: PSORIASIS
     Dosage: STRENGTH: 210 MG/1.5 ML?HAD 3 SYRINGES WEEK 1,2,3
     Route: 058
     Dates: end: 202011

REACTIONS (1)
  - Pyoderma gangrenosum [Unknown]

NARRATIVE: CASE EVENT DATE: 202011
